FAERS Safety Report 23843166 (Version 1)
Quarter: 2024Q2

REPORT INFORMATION
  Report Type: Spontaneous
  Country: TR (occurrence: TR)
  Receive Date: 20240510
  Receipt Date: 20240510
  Transmission Date: 20240716
  Serious: Yes (Other)
  Sender: FDA-Public Use
  Company Number: TR-NOVOPROD-1193534

PATIENT
  Age: 43 Year
  Sex: Female
  Weight: 77 kg

DRUGS (3)
  1. SAXENDA [Suspect]
     Active Substance: LIRAGLUTIDE
     Dosage: 0.9 MG
  2. SAXENDA [Suspect]
     Active Substance: LIRAGLUTIDE
     Indication: Product used for unknown indication
     Dosage: 0.6 MG
  3. TARLUSAL [Concomitant]
     Indication: Product used for unknown indication

REACTIONS (3)
  - Foetal heart rate abnormal [Unknown]
  - Maternal exposure during pregnancy [Unknown]
  - Off label use [Unknown]
